FAERS Safety Report 20461330 (Version 1)
Quarter: 2022Q1

REPORT INFORMATION
  Report Type: Spontaneous
  Country: IN (occurrence: IN)
  Receive Date: 20220211
  Receipt Date: 20220211
  Transmission Date: 20220423
  Serious: Yes (Death)
  Sender: FDA-Public Use
  Company Number: IN-PFIZER INC-2020261553

PATIENT
  Age: 70 Year
  Sex: Female

DRUGS (7)
  1. PALBOCICLIB [Suspect]
     Active Substance: PALBOCICLIB
     Indication: Breast cancer metastatic
     Dosage: 125 MG, 1X/DAY
     Route: 048
     Dates: start: 20190926
  2. PALBOCICLIB [Suspect]
     Active Substance: PALBOCICLIB
     Dosage: UNK
     Dates: start: 201910
  3. PALBOCICLIB [Suspect]
     Active Substance: PALBOCICLIB
     Dosage: 125 MG DAILY
     Dates: start: 20200527
  4. PALBOCICLIB [Suspect]
     Active Substance: PALBOCICLIB
     Dosage: 125 MG, 1X/DAY
     Dates: start: 20210701, end: 20210721
  5. LETALL [Concomitant]
     Indication: Breast cancer metastatic
     Dosage: 2.5 MG, 1X/DAY
  6. LETALL [Concomitant]
     Dosage: UNK
     Dates: start: 201910
  7. IBANDRONATE SODIUM [Concomitant]
     Active Substance: IBANDRONATE SODIUM
     Indication: Breast cancer metastatic
     Dosage: UNK
     Dates: start: 201910

REACTIONS (4)
  - Death [Fatal]
  - Weight decreased [Unknown]
  - Back pain [Unknown]
  - Urinary incontinence [Unknown]
